FAERS Safety Report 4495364-7 (Version None)
Quarter: 2004Q4

REPORT INFORMATION
  Report Type: 
  Country: None (occurrence: None)
  Receive Date: 20041103
  Receipt Date: 20041020
  Transmission Date: 20050328
  Serious: Yes (Hospitalization)
  Sender: FDA-Public Use
  Company Number: MK200410-0190-1

PATIENT
  Age: 40 Year
  Sex: Male

DRUGS (2)
  1. LORTAB [Suspect]
     Indication: SUICIDE ATTEMPT
     Dosage: ONCE
     Dates: start: 20040118
  2. ATIVAN [Suspect]
     Indication: SUICIDE ATTEMPT
     Dosage: 42 MG, ONCE
     Dates: start: 20040118

REACTIONS (5)
  - AGGRESSION [None]
  - AGITATION [None]
  - DRUG INEFFECTIVE [None]
  - SUICIDE ATTEMPT [None]
  - TREATMENT NONCOMPLIANCE [None]
